FAERS Safety Report 12423579 (Version 1)
Quarter: 2016Q2

REPORT INFORMATION
  Report Type: Spontaneous
  Country: US (occurrence: None)
  Receive Date: 20160531
  Receipt Date: 20160531
  Transmission Date: 20160815
  Serious: Yes (Disabling, Other)
  Sender: FDA-Public Use
  Company Number: None

PATIENT
  Age: 51 Year
  Sex: Male
  Weight: 72.12 kg

DRUGS (12)
  1. COQ10 COENZYME WITH RESVERATROL [Concomitant]
  2. IRON FERROUS SULFATE [Concomitant]
  3. PENTOXIFYLLINE. [Concomitant]
     Active Substance: PENTOXIFYLLINE
  4. VENLAFAXINE ER [Concomitant]
     Active Substance: VENLAFAXINE HYDROCHLORIDE
  5. ASPIRINS [Concomitant]
  6. VESICARE [Concomitant]
     Active Substance: SOLIFENACIN SUCCINATE
  7. HYOSCYAMINE. [Concomitant]
     Active Substance: HYOSCYAMINE
  8. CRESTOR [Concomitant]
     Active Substance: ROSUVASTATIN CALCIUM
  9. TESTIM [Suspect]
     Active Substance: TESTOSTERONE
     Indication: LIBIDO DECREASED
     Dosage: 1-TEASPOONFUL ON FINGER OR 2 PUFFS TWO TIMES DAILY APPLY TO SKIN (BOTH ARMS)
     Route: 061
     Dates: start: 20100407, end: 20110524
  10. VITAMIN C [Concomitant]
     Active Substance: ASCORBIC ACID
  11. CARVEDILOL. [Concomitant]
     Active Substance: CARVEDILOL
  12. LISINOPRIL. [Concomitant]
     Active Substance: LISINOPRIL

REACTIONS (16)
  - Cardiac disorder [None]
  - Mouth haemorrhage [None]
  - Scrotal pain [None]
  - Dizziness [None]
  - Blood pressure increased [None]
  - Embolism [None]
  - Haemorrhage [None]
  - Penile haemorrhage [None]
  - Gynaecomastia [None]
  - Insomnia [None]
  - Abdominal pain [None]
  - Aggression [None]
  - Urinary tract disorder [None]
  - Hyperhidrosis [None]
  - Haemorrhoids [None]
  - Dyspnoea [None]

NARRATIVE: CASE EVENT DATE: 20101006
